FAERS Safety Report 16239664 (Version 1)
Quarter: 2019Q2

REPORT INFORMATION
  Report Type: Spontaneous
  Country: US (occurrence: US)
  Receive Date: 20190425
  Receipt Date: 20190425
  Transmission Date: 20190711
  Serious: Yes (Other)
  Sender: FDA-Public Use
  Company Number: US-TEVA-2019-US-1041251

PATIENT
  Age: 54 Year
  Sex: Male

DRUGS (2)
  1. WARFARIN [Suspect]
     Active Substance: WARFARIN
     Indication: PULMONARY EMBOLISM
     Route: 065
  2. PREDNISONE. [Concomitant]
     Active Substance: PREDNISONE
     Route: 065

REACTIONS (6)
  - Malaise [Unknown]
  - Fatigue [Unknown]
  - Haemoptysis [Recovered/Resolved]
  - Melaena [Unknown]
  - Anticoagulation drug level above therapeutic [Unknown]
  - Fluid overload [Unknown]
